FAERS Safety Report 7912274-0 (Version None)
Quarter: 2011Q4

REPORT INFORMATION
  Report Type: 
  Country: None (occurrence: None)
  Receive Date: 20111114
  Receipt Date: 20111104
  Transmission Date: 20120403
  Serious: Yes (Hospitalization, Disabling, Other)
  Sender: FDA-Public Use
  Company Number: US-MERCK-0806USA08536

PATIENT
  Age: 63 Year
  Sex: Female

DRUGS (4)
  1. FOSAMAX [Suspect]
     Route: 048
     Dates: start: 20010101, end: 20051101
  2. FOSAMAX [Suspect]
     Indication: OSTEOPENIA
     Route: 048
     Dates: start: 19960401, end: 20001201
  3. FOSAMAX [Suspect]
     Indication: OSTEOPOROSIS
     Route: 048
     Dates: start: 19960401, end: 20001201
  4. FOSAMAX [Suspect]
     Route: 048
     Dates: start: 20010101, end: 20051101

REACTIONS (46)
  - FALL [None]
  - SEASONAL ALLERGY [None]
  - SOFT TISSUE INFLAMMATION [None]
  - CHOLELITHIASIS [None]
  - DIVERTICULUM [None]
  - HYPOTHYROIDISM [None]
  - DYSPHAGIA [None]
  - DENTAL CARIES [None]
  - PULMONARY GRANULOMA [None]
  - GRANULOMATOUS LIVER DISEASE [None]
  - DEHYDRATION [None]
  - URINARY TRACT INFECTION [None]
  - OSTEONECROSIS [None]
  - POSTMENOPAUSE [None]
  - GRANULOMA [None]
  - BLOOD CHOLESTEROL INCREASED [None]
  - ANXIETY [None]
  - FEAR [None]
  - SPLENIC GRANULOMA [None]
  - OSTEOMYELITIS [None]
  - PERIODONTITIS [None]
  - MYALGIA [None]
  - EXPOSED BONE IN JAW [None]
  - QUALITY OF LIFE DECREASED [None]
  - HAEMATOCHEZIA [None]
  - INTERVERTEBRAL DISC DEGENERATION [None]
  - TEMPOROMANDIBULAR JOINT SYNDROME [None]
  - ACQUIRED OESOPHAGEAL WEB [None]
  - INFLUENZA [None]
  - OSTEOARTHRITIS [None]
  - SPINAL COMPRESSION FRACTURE [None]
  - ABSCESS [None]
  - GINGIVAL DISORDER [None]
  - IMPAIRED HEALING [None]
  - COUGH [None]
  - MENTAL DISORDER [None]
  - EMOTIONAL DISTRESS [None]
  - SINUSITIS [None]
  - LUMBAR SPINAL STENOSIS [None]
  - TRIGEMINAL NEURALGIA [None]
  - INSOMNIA [None]
  - OSTEONECROSIS OF JAW [None]
  - DIVERTICULITIS [None]
  - TOOTHACHE [None]
  - STRESS [None]
  - GINGIVITIS [None]
